FAERS Safety Report 18057639 (Version 2)
Quarter: 2020Q3

REPORT INFORMATION
  Report Type: Spontaneous
  Country: CA (occurrence: CA)
  Receive Date: 20200722
  Receipt Date: 20200729
  Transmission Date: 20201103
  Serious: Yes (Other)
  Sender: FDA-Public Use
  Company Number: CA-ASCEND THERAPEUTICS US, LLC-2087641

PATIENT
  Age: 73 Year
  Sex: Female

DRUGS (7)
  1. ESTROGEL [Suspect]
     Active Substance: ESTRADIOL
     Indication: PRODUCT USED FOR UNKNOWN INDICATION
     Route: 065
  2. ACTEMRA [Suspect]
     Active Substance: TOCILIZUMAB
     Route: 058
  3. FOSAMAX [Concomitant]
     Active Substance: ALENDRONATE SODIUM
     Route: 065
  4. ESTROGEL [Suspect]
     Active Substance: ESTRADIOL
  5. DESOXIMETASONE. [Suspect]
     Active Substance: DESOXIMETASONE
  6. PROMETRIUM [Suspect]
     Active Substance: PROGESTERONE
     Route: 065
  7. PREDNISONE. [Concomitant]
     Active Substance: PREDNISONE
     Route: 065

REACTIONS (14)
  - Bone disorder [Not Recovered/Not Resolved]
  - Product use in unapproved indication [None]
  - Chest discomfort [Not Recovered/Not Resolved]
  - Breast disorder [Not Recovered/Not Resolved]
  - Dyspnoea [Not Recovered/Not Resolved]
  - Onychoclasis [Not Recovered/Not Resolved]
  - Abdominal pain upper [Not Recovered/Not Resolved]
  - Breast pain [Not Recovered/Not Resolved]
  - Arthralgia [Not Recovered/Not Resolved]
  - Hypothyroidism [Not Recovered/Not Resolved]
  - Nail disorder [Not Recovered/Not Resolved]
  - Breast swelling [Not Recovered/Not Resolved]
  - Abdominal pain [Not Recovered/Not Resolved]
  - Off label use [Not Recovered/Not Resolved]
